FAERS Safety Report 22954896 (Version 2)
Quarter: 2023Q4

REPORT INFORMATION
  Report Type: Spontaneous
  Country: ES (occurrence: ES)
  Receive Date: 20230918
  Receipt Date: 20231228
  Transmission Date: 20240110
  Serious: Yes (Other)
  Sender: FDA-Public Use
  Company Number: ES-PFIZER INC-202201071842

PATIENT
  Age: 39 Year
  Sex: Female

DRUGS (22)
  1. PHENYTOIN [Suspect]
     Active Substance: PHENYTOIN
     Indication: Generalised tonic-clonic seizure
     Dosage: 100 MILLIGRAM, Q8H (100 MG /8H)
     Route: 065
  2. PHENYTOIN [Suspect]
     Active Substance: PHENYTOIN
     Indication: Status epilepticus
  3. PHENYTOIN [Suspect]
     Active Substance: PHENYTOIN
     Indication: Idiopathic generalised epilepsy
  4. BRIVARACETAM [Suspect]
     Active Substance: BRIVARACETAM
     Indication: Status epilepticus
     Dosage: 100 MILLIGRAM, BID (1 DOSE 12 HOURS)
     Route: 065
  5. BRIVARACETAM [Suspect]
     Active Substance: BRIVARACETAM
     Indication: Idiopathic generalised epilepsy
  6. VALPROIC ACID [Suspect]
     Active Substance: VALPROIC ACID
     Indication: Status epilepticus
     Dosage: 4800 MILLIGRAM, QD
     Route: 065
  7. VALPROIC ACID [Suspect]
     Active Substance: VALPROIC ACID
     Indication: Idiopathic generalised epilepsy
  8. LACOSAMIDE [Suspect]
     Active Substance: LACOSAMIDE
     Indication: Status epilepticus
     Dosage: 200 MILLIGRAM, BID (1 DOSE 12 HOURS)
     Route: 065
  9. LACOSAMIDE [Suspect]
     Active Substance: LACOSAMIDE
     Indication: Idiopathic generalised epilepsy
  10. PERAMPANEL [Suspect]
     Active Substance: PERAMPANEL
     Indication: Status epilepticus
     Dosage: 12 MILLIGRAM
     Route: 065
  11. PERAMPANEL [Suspect]
     Active Substance: PERAMPANEL
     Indication: Idiopathic generalised epilepsy
  12. THIOPENTAL [Suspect]
     Active Substance: THIOPENTAL
     Indication: Status epilepticus
     Dosage: 5 MILLIGRAM/KILOGRAM, QH (1 DOSE HOURLY)
     Route: 065
  13. METHYLPREDNISOLONE [Suspect]
     Active Substance: METHYLPREDNISOLONE
     Indication: Status epilepticus
     Dosage: 1 MILLIGRAM/KILOGRAM, QD
     Route: 065
  14. PROPOFOL [Suspect]
     Active Substance: PROPOFOL
     Indication: Status epilepticus
     Dosage: 15 DOSAGE FORM (15 ML/H)
     Route: 065
  15. PROPOFOL [Suspect]
     Active Substance: PROPOFOL
     Indication: Idiopathic generalised epilepsy
  16. MIDAZOLAM [Suspect]
     Active Substance: MIDAZOLAM
     Indication: Status epilepticus
     Dosage: 12 DOSAGE FORM (12 ML/H)
     Route: 065
  17. MIDAZOLAM [Suspect]
     Active Substance: MIDAZOLAM
     Indication: Idiopathic generalised epilepsy
  18. LEVETIRACETAM [Suspect]
     Active Substance: LEVETIRACETAM
     Indication: Status epilepticus
     Dosage: 750 MILLIGRAM, BID (1 DOSE 12 HOURS)
     Route: 065
  19. LEVETIRACETAM [Suspect]
     Active Substance: LEVETIRACETAM
     Indication: Idiopathic generalised epilepsy
     Dosage: 4000 MILLIGRAM, QD
     Route: 065
  20. LEVETIRACETAM [Suspect]
     Active Substance: LEVETIRACETAM
     Dosage: 500 MILLIGRAM, BID (1 DOSE 12 HOURS)
     Route: 065
  21. PHENOBARBITAL [Concomitant]
     Active Substance: PHENOBARBITAL
     Indication: Status epilepticus
     Dosage: 4 MILLIGRAM/KILOGRAM, QD
     Route: 065
  22. PHENOBARBITAL [Concomitant]
     Active Substance: PHENOBARBITAL
     Indication: Idiopathic generalised epilepsy

REACTIONS (8)
  - Premature delivery [Unknown]
  - Disease recurrence [Unknown]
  - Drug reaction with eosinophilia and systemic symptoms [Unknown]
  - Maternal exposure during pregnancy [Unknown]
  - Caesarean section [Unknown]
  - Drug ineffective [Unknown]
  - Off label use [Unknown]
  - Drug hypersensitivity [Unknown]
